FAERS Safety Report 23081485 (Version 2)
Quarter: 2023Q4

REPORT INFORMATION
  Report Type: Report from Study
  Country: AU (occurrence: AU)
  Receive Date: 20231019
  Receipt Date: 20231203
  Transmission Date: 20240109
  Serious: Yes (Hospitalization)
  Sender: FDA-Public Use
  Company Number: AU-BIOGEN-2023BI01231429

PATIENT
  Sex: Female

DRUGS (1)
  1. TYSABRI [Suspect]
     Active Substance: NATALIZUMAB
     Indication: Relapsing-remitting multiple sclerosis
     Route: 050
     Dates: start: 20230728

REACTIONS (3)
  - Multiple sclerosis relapse [Not Recovered/Not Resolved]
  - Infusion related reaction [Unknown]
  - Underdose [Unknown]

NARRATIVE: CASE EVENT DATE: 20230101
